FAERS Safety Report 10386739 (Version 2)
Quarter: 2014Q3

REPORT INFORMATION
  Report Type: Spontaneous
  Country: JP (occurrence: JP)
  Receive Date: 20140815
  Receipt Date: 20140827
  Transmission Date: 20150326
  Serious: Yes (Hospitalization)
  Sender: FDA-Public Use
  Company Number: JP-JNJFOC-20140715678

PATIENT
  Age: 73 Year
  Sex: Female

DRUGS (1)
  1. TRAMCET [Suspect]
     Active Substance: ACETAMINOPHEN\TRAMADOL
     Indication: PAIN
     Dosage: 2 TABLETS ONCE PER DAY
     Route: 048
     Dates: start: 20121204, end: 20121211

REACTIONS (1)
  - Hepatorenal failure [Not Recovered/Not Resolved]

NARRATIVE: CASE EVENT DATE: 20121211
